FAERS Safety Report 16464530 (Version 1)
Quarter: 2019Q3

REPORT INFORMATION
  Report Type: Spontaneous
  Country: US (occurrence: US)
  Receive Date: 20190620
  Receipt Date: 20190620
  Transmission Date: 20191004
  Serious: Yes (Other)
  Sender: FDA-Public Use
  Company Number: None

PATIENT
  Age: 43 Year
  Sex: Female
  Weight: 101.7 kg

DRUGS (1)
  1. METHYLPREDNISOLONE 4 MG [Suspect]
     Active Substance: METHYLPREDNISOLONE
     Indication: ASTHMA
     Dosage: ?          QUANTITY:21 TABLET(S);OTHER FREQUENCY:SLIDING SCALE DOWN;?
     Route: 048
     Dates: start: 20190613, end: 20190620

REACTIONS (1)
  - Chest pain [None]

NARRATIVE: CASE EVENT DATE: 20190613
